FAERS Safety Report 9478545 (Version 4)
Quarter: 2014Q2

REPORT INFORMATION
  Report Type: Report from Study
  Country: JP (occurrence: JP)
  Receive Date: 20130827
  Receipt Date: 20140624
  Transmission Date: 20141212
  Serious: Yes (Other)
  Sender: FDA-Public Use
  Company Number: JP-VERTEX PHARMACEUTICALS INC-AE-2012-007178

PATIENT
  Age: 65 Year
  Sex: Male

DRUGS (10)
  1. VX-950 (TELAPREVIR) [Suspect]
     Indication: CHRONIC HEPATITIS C
     Dosage: 2250 MG, QD
     Route: 048
     Dates: start: 20120322, end: 20120418
  2. VX-950 (TELAPREVIR) [Suspect]
     Dosage: 1500 MG, QD
     Route: 048
     Dates: start: 20120419, end: 20120501
  3. VX-950 (TELAPREVIR) [Suspect]
     Dosage: 750 MG, QD
     Route: 048
     Dates: start: 20120502, end: 20120613
  4. REBETOL [Suspect]
     Indication: CHRONIC HEPATITIS C
     Dosage: 600 MG, QD
     Route: 048
     Dates: start: 20120322, end: 20120411
  5. REBETOL [Suspect]
     Dosage: 400 MG, QD
     Route: 048
     Dates: start: 20120412
  6. PEGINTRON [Suspect]
     Indication: CHRONIC HEPATITIS C
     Dosage: 1.5 ?G/KG, QW
     Route: 058
     Dates: start: 20120322
  7. PARIET [Concomitant]
     Dosage: 10 MG, QD
     Route: 048
  8. GASLON N [Concomitant]
     Dosage: 4 MG, QD
     Route: 048
  9. IPD [Concomitant]
     Dosage: 200 MG, QD
     Route: 048
  10. HIRUDOID [Concomitant]
     Dosage: 50 G, QD
     Route: 061

REACTIONS (2)
  - White blood cell count decreased [Recovering/Resolving]
  - Erythema multiforme [Recovering/Resolving]
